FAERS Safety Report 15824495 (Version 1)
Quarter: 2019Q1

REPORT INFORMATION
  Report Type: Report from Study
  Country: US (occurrence: US)
  Receive Date: 20190115
  Receipt Date: 20190115
  Transmission Date: 20190417
  Serious: Yes (Death)
  Sender: FDA-Public Use
  Company Number: US-TEVA-2018-US-975531

PATIENT
  Age: 68 Year
  Sex: Female

DRUGS (3)
  1. AUSTEDO [Suspect]
     Active Substance: DEUTETRABENAZINE
     Indication: HUNTINGTON^S DISEASE
     Dosage: 24 MILLIGRAM DAILY;
     Route: 065
     Dates: start: 20180517
  2. SEROQUEL [Suspect]
     Active Substance: QUETIAPINE FUMARATE
     Route: 065
  3. CLONAZEPAM. [Suspect]
     Active Substance: CLONAZEPAM
     Route: 065

REACTIONS (5)
  - Anger [Unknown]
  - Aggression [Unknown]
  - Fall [Unknown]
  - Death [Fatal]
  - Disease progression [Unknown]

NARRATIVE: CASE EVENT DATE: 20181205
